FAERS Safety Report 26011313 (Version 1)
Quarter: 2025Q4

REPORT INFORMATION
  Report Type: Spontaneous
  Country: US (occurrence: US)
  Receive Date: 20251107
  Receipt Date: 20251107
  Transmission Date: 20260118
  Serious: Yes (Death)
  Sender: SANOFI AVENTIS
  Company Number: US-SA-2025SA230413

PATIENT
  Age: 72 Year
  Sex: Female
  Weight: 65.91 kg

DRUGS (3)
  1. DUPIXENT [Suspect]
     Active Substance: DUPILUMAB
     Indication: Chronic obstructive pulmonary disease
     Dosage: 300 MG, QOW
     Route: 058
     Dates: end: 20250716
  2. DUPIXENT [Suspect]
     Active Substance: DUPILUMAB
     Indication: Eosinophil count abnormal
  3. ALBUTEROL [Concomitant]
     Active Substance: ALBUTEROL

REACTIONS (2)
  - Dyspnoea [Fatal]
  - Product use in unapproved indication [Unknown]
